FAERS Safety Report 19019421 (Version 1)
Quarter: 2021Q1

REPORT INFORMATION
  Report Type: Report from Study
  Country: US (occurrence: US)
  Receive Date: 20210317
  Receipt Date: 20210317
  Transmission Date: 20210420
  Serious: Yes (Other)
  Sender: FDA-Public Use
  Company Number: US-JNJFOC-20210321862

PATIENT

DRUGS (2)
  1. ADALIMUMAB [Suspect]
     Active Substance: ADALIMUMAB
     Indication: RETINAL VASCULAR DISORDER
     Route: 065
  2. REMICADE [Suspect]
     Active Substance: INFLIXIMAB
     Indication: RETINAL VASCULAR DISORDER
     Route: 042

REACTIONS (9)
  - Pneumonia [Unknown]
  - Gastrointestinal disorder [Unknown]
  - Rash [Unknown]
  - Anaphylactoid reaction [Recovered/Resolved]
  - Infusion related reaction [Recovered/Resolved]
  - Off label use [Unknown]
  - Deep vein thrombosis [Unknown]
  - Lupus-like syndrome [Unknown]
  - Drug ineffective for unapproved indication [Unknown]
